FAERS Safety Report 12863645 (Version 6)
Quarter: 2022Q3

REPORT INFORMATION
  Report Type: Spontaneous
  Country: JP (occurrence: JP)
  Receive Date: 20161019
  Receipt Date: 20220725
  Transmission Date: 20221027
  Serious: Yes (Hospitalization, Other)
  Sender: FDA-Public Use
  Company Number: JP-BRISTOL-MYERS SQUIBB COMPANY-BMS-2016-086824

PATIENT
  Age: 69 Year
  Sex: Male
  Weight: 60 kg

DRUGS (1)
  1. OPDIVO [Suspect]
     Active Substance: NIVOLUMAB
     Indication: Non-small cell lung cancer recurrent
     Route: 041
     Dates: start: 20160727, end: 20161012

REACTIONS (5)
  - Escherichia infection [Unknown]
  - Infective spondylitis [Unknown]
  - Colitis [Recovered/Resolved]
  - Sepsis [Recovered/Resolved]
  - Effusion [Unknown]

NARRATIVE: CASE EVENT DATE: 20161001
